FAERS Safety Report 4411971-1 (Version None)
Quarter: 2004Q3

REPORT INFORMATION
  Report Type: 
  Country: None (occurrence: None)
  Receive Date: 20040729
  Receipt Date: 20040729
  Transmission Date: 20050211
  Serious: Yes (Death)
  Sender: FDA-Public Use
  Company Number: None

PATIENT
  Age: 77 Year
  Sex: Female
  Weight: 68.0396 kg

DRUGS (1)
  1. BEXXAR [Suspect]
     Indication: NON-HODGKIN'S LYMPHOMA
     Dates: start: 20040603

REACTIONS (9)
  - CARDIO-RESPIRATORY ARREST [None]
  - FEELING HOT [None]
  - FLUSHING [None]
  - INCONTINENCE [None]
  - PAIN IN EXTREMITY [None]
  - PERIPHERAL COLDNESS [None]
  - PERIPHERAL EMBOLISM [None]
  - SKIN DISCOLOURATION [None]
  - SPEECH DISORDER [None]
